FAERS Safety Report 6269545-6 (Version None)
Quarter: 2009Q3

REPORT INFORMATION
  Report Type: 
  Country: None (occurrence: None)
  Receive Date: 20090714
  Receipt Date: 20090630
  Transmission Date: 20100115
  Serious: Yes (Hospitalization)
  Sender: FDA-Public Use
  Company Number: 006928

PATIENT
  Age: 89 Year
  Sex: Male

DRUGS (1)
  1. PLETAL [Suspect]
     Indication: ARTERIOSCLEROSIS OBLITERANS
     Dosage: 50 MG, BID, ORAL
     Route: 047
     Dates: start: 20080324, end: 20080331

REACTIONS (4)
  - AORTIC ANEURYSM [None]
  - ARTERIOSCLEROSIS OBLITERANS [None]
  - GASTRIC ULCER [None]
  - REFUSAL OF TREATMENT BY PATIENT [None]
